FAERS Safety Report 14747183 (Version 1)
Quarter: 2018Q2

REPORT INFORMATION
  Report Type: Spontaneous
  Country: None (occurrence: US)
  Receive Date: 20180411
  Receipt Date: 20180411
  Transmission Date: 20180711
  Serious: No
  Sender: FDA-Public Use
  Company Number: US-ALLERGAN-1724362US

PATIENT
  Sex: Female

DRUGS (1)
  1. RISEDRONATE SODIUM - BP [Suspect]
     Active Substance: RISEDRONATE SODIUM
     Indication: OSTEOPOROSIS
     Dosage: UNK
     Dates: start: 201611, end: 20170529

REACTIONS (7)
  - Hypoaesthesia [Recovering/Resolving]
  - Pain [Recovering/Resolving]
  - Nausea [Unknown]
  - Paraesthesia [Recovered/Resolved]
  - Hypoaesthesia eye [Not Recovered/Not Resolved]
  - Paraesthesia oral [Recovering/Resolving]
  - Hypoaesthesia oral [Recovering/Resolving]
